FAERS Safety Report 5018181-8 (Version None)
Quarter: 2006Q2

REPORT INFORMATION
  Report Type: 
  Country: None (occurrence: None)
  Receive Date: 20060530
  Receipt Date: 20060515
  Transmission Date: 20061013
  Serious: Yes (Other)
  Sender: FDA-Public Use
  Company Number: 2006066007

PATIENT
  Age: 35 Year
  Sex: Female

DRUGS (3)
  1. SOLU-CORTEF [Suspect]
     Indication: URTICARIA
     Dosage: 200 MG (200 MG, 1 IN 1 D), INTRAVENOUS
     Route: 042
     Dates: start: 20060515, end: 20060515
  2. CELASTAMINE (BETAMETHASONE, CHLORPHENAMINE MALEATE) [Concomitant]
  3. STRONG NEO-MINOPHAGEN C (AMINOACETIC ACID, CYSTEINE, GLYCYRRHIZIC ACID [Concomitant]

REACTIONS (1)
  - SHOCK [None]
